FAERS Safety Report 20762289 (Version 1)
Quarter: 2022Q2

REPORT INFORMATION
  Report Type: Spontaneous
  Country: CN (occurrence: CN)
  Receive Date: 20220428
  Receipt Date: 20220428
  Transmission Date: 20220721
  Serious: Yes (Life-Threatening, Hospitalization, Other)
  Sender: FDA-Public Use
  Company Number: CN-MLMSERVICE-20220418-3506632-1

PATIENT
  Age: 53 Year
  Sex: Female

DRUGS (2)
  1. CISPLATIN [Suspect]
     Active Substance: CISPLATIN
     Indication: Small cell carcinoma
  2. IRINOTECAN [Suspect]
     Active Substance: IRINOTECAN
     Indication: Small cell carcinoma

REACTIONS (3)
  - Cryptococcal cutaneous infection [Recovered/Resolved]
  - Cryptococcosis [Recovered/Resolved]
  - Myelosuppression [Unknown]
